FAERS Safety Report 9943316 (Version 1)
Quarter: 2014Q1

REPORT INFORMATION
  Report Type: Other
  Country: CH (occurrence: CH)
  Receive Date: 20140303
  Receipt Date: 20140303
  Transmission Date: 20141002
  Serious: Yes (Other)
  Sender: FDA-Public Use
  Company Number: CH-BRISTOL-MYERS SQUIBB COMPANY-20334173

PATIENT
  Age: 83 Year
  Sex: Male

DRUGS (2)
  1. BYETTA [Suspect]
     Indication: TYPE 2 DIABETES MELLITUS
     Dosage: 5 MCG PEN
     Route: 058
  2. LIRAGLUTIDE [Suspect]
     Indication: TYPE 2 DIABETES MELLITUS

REACTIONS (1)
  - Tubulointerstitial nephritis [Unknown]
